FAERS Safety Report 9241058 (Version 1)
Quarter: 2013Q1

REPORT INFORMATION
  Report Type: Spontaneous
  Country: US (occurrence: None)
  Receive Date: 20121120
  Receipt Date: 20121120
  Transmission Date: 20140127
  Serious: No
  Sender: FDA-Public Use
  Company Number: 100039192

PATIENT
  Age: 65 Year
  Sex: Male

DRUGS (1)
  1. VIIBRYD [Suspect]
     Indication: ANXIETY
     Dosage: 20 MG ( 20 MG, 1 IN 1 D), ORAL
     Route: 048
     Dates: start: 201207

REACTIONS (2)
  - Joint stiffness [None]
  - Off label use [None]
